FAERS Safety Report 15059094 (Version 1)
Quarter: 2018Q2

REPORT INFORMATION
  Report Type: Spontaneous
  Country: US (occurrence: US)
  Receive Date: 20180625
  Receipt Date: 20180625
  Transmission Date: 20180711
  Serious: No
  Sender: FDA-Public Use
  Company Number: US-BAYER-2018-114411

PATIENT
  Sex: Female

DRUGS (1)
  1. MIRALAX [Suspect]
     Active Substance: POLYETHYLENE GLYCOL 3350
     Indication: GASTROINTESTINAL DISORDER
     Dosage: UNK
     Route: 048

REACTIONS (6)
  - Product prescribing issue [Unknown]
  - Abdominal pain [Not Recovered/Not Resolved]
  - Product use issue [Unknown]
  - Flatulence [Not Recovered/Not Resolved]
  - Gastrointestinal disorder [Unknown]
  - Sleep disorder [Unknown]
